FAERS Safety Report 18308334 (Version 3)
Quarter: 2020Q4

REPORT INFORMATION
  Report Type: Report from Study
  Country: US (occurrence: US)
  Receive Date: 20200924
  Receipt Date: 20201021
  Transmission Date: 20210113
  Serious: Yes (Hospitalization)
  Sender: FDA-Public Use
  Company Number: US-PFIZER INC-2020360493

PATIENT
  Age: 9 Year
  Sex: Male
  Weight: 21.1 kg

DRUGS (1)
  1. BINIMETINIB [Suspect]
     Active Substance: BINIMETINIB
     Indication: NEUROFIBROMA
     Dosage: 22 MG, BID
     Route: 048
     Dates: start: 20190328

REACTIONS (1)
  - Weight decreased [Not Recovered/Not Resolved]

NARRATIVE: CASE EVENT DATE: 20200914
